FAERS Safety Report 20946243 (Version 3)
Quarter: 2022Q2

REPORT INFORMATION
  Report Type: Spontaneous
  Country: US (occurrence: US)
  Receive Date: 20220610
  Receipt Date: 20220617
  Transmission Date: 20220721
  Serious: No
  Sender: FDA-Public Use
  Company Number: US-PFIZER INC-202200822504

PATIENT
  Age: 18 Year
  Sex: Female
  Weight: 49.9 kg

DRUGS (3)
  1. PAXLOVID [Suspect]
     Active Substance: NIRMATRELVIR\RITONAVIR
     Indication: COVID-19 treatment
     Dosage: [PF-07321332 300 MG]/[RITONAVIR 100 MG]; 2X/DAY
  2. GABAPENTIN [Concomitant]
     Active Substance: GABAPENTIN
     Indication: Myalgia
     Dosage: 200 MG, 3X/DAY
  3. GABAPENTIN [Concomitant]
     Active Substance: GABAPENTIN
     Indication: Anxiety

REACTIONS (1)
  - Dysgeusia [Unknown]
